FAERS Safety Report 20377603 (Version 1)
Quarter: 2022Q1

REPORT INFORMATION
  Report Type: Spontaneous
  Country: CA (occurrence: CA)
  Receive Date: 20220126
  Receipt Date: 20220126
  Transmission Date: 20220423
  Serious: Yes (Other)
  Sender: FDA-Public Use
  Company Number: CA-ORGANON-O2201CAN001204

PATIENT
  Sex: Male

DRUGS (1)
  1. ZENHALE [Suspect]
     Active Substance: FORMOTEROL FUMARATE\MOMETASONE FUROATE
     Dosage: UNK, STRENGTH: 120 DOSES
     Route: 065

REACTIONS (3)
  - Hypothalamo-pituitary disorder [Unknown]
  - Growth retardation [Unknown]
  - Cortisol decreased [Unknown]
